FAERS Safety Report 25263903 (Version 2)
Quarter: 2025Q2

REPORT INFORMATION
  Report Type: Report from Study
  Country: GB (occurrence: GB)
  Receive Date: 20250502
  Receipt Date: 20250613
  Transmission Date: 20250717
  Serious: Yes (Death, Other)
  Sender: MARINUS PHARMACEUTICALS
  Company Number: GB-MARINUS PHARMACEUTICALS, INC.-MAR2025000087

PATIENT

DRUGS (3)
  1. GANAXOLONE [Suspect]
     Active Substance: GANAXOLONE
     Indication: Epilepsy
     Route: 065
  2. RUFINAMIDE [Suspect]
     Active Substance: RUFINAMIDE
     Indication: Product used for unknown indication
     Route: 065
  3. LAMOTRIGINE [Suspect]
     Active Substance: LAMOTRIGINE
     Indication: Product used for unknown indication
     Route: 065

REACTIONS (1)
  - Sudden unexplained death in epilepsy [Fatal]

NARRATIVE: CASE EVENT DATE: 20250101
